FAERS Safety Report 4797476-7 (Version None)
Quarter: 2005Q4

REPORT INFORMATION
  Report Type: 
  Country: None (occurrence: None)
  Receive Date: 20051011
  Receipt Date: 20041115
  Transmission Date: 20060501
  Serious: Yes (Hospitalization, Disabling)
  Sender: FDA-Public Use
  Company Number: 9309

PATIENT
  Age: 51 Year
  Sex: Female

DRUGS (1)
  1. METHOTREXATE [Suspect]
     Indication: GLIOBLASTOMA
     Dosage: 10 MG IT
     Route: 036
     Dates: start: 20030217, end: 20030620

REACTIONS (3)
  - COORDINATION ABNORMAL [None]
  - SOMNOLENCE [None]
  - SPEECH DISORDER [None]
